FAERS Safety Report 14263571 (Version 3)
Quarter: 2018Q1

REPORT INFORMATION
  Report Type: Spontaneous
  Country: US (occurrence: US)
  Receive Date: 20171208
  Receipt Date: 20180216
  Transmission Date: 20180508
  Serious: Yes (Hospitalization)
  Sender: FDA-Public Use
  Company Number: US-PFIZER INC-2017525911

PATIENT
  Age: 13 Year
  Sex: Female
  Weight: 31 kg

DRUGS (3)
  1. LACTOSE [Concomitant]
     Active Substance: LACTOSE
     Dosage: UNK UNK, LACTOSE PILLS AS NEEDED
  2. CHILDRENS ADVIL COLD [Suspect]
     Active Substance: IBUPROFEN\PSEUDOEPHEDRINE HYDROCHLORIDE
     Dosage: 20 MG, UNK
  3. CHILDRENS ADVIL COLD [Suspect]
     Active Substance: IBUPROFEN\PSEUDOEPHEDRINE HYDROCHLORIDE
     Indication: ORAL PAIN
     Dosage: UNK, SINGLE
     Route: 048
     Dates: start: 20171203, end: 20171203

REACTIONS (5)
  - Poor quality drug administered [Recovered/Resolved]
  - Dysgeusia [Recovered/Resolved]
  - Product taste abnormal [Recovered/Resolved]
  - Drug administered to patient of inappropriate age [Recovered/Resolved]
  - Product physical consistency issue [Recovered/Resolved]

NARRATIVE: CASE EVENT DATE: 20171203
